FAERS Safety Report 9555406 (Version 1)
Quarter: 2013Q3

REPORT INFORMATION
  Report Type: Spontaneous
  Country: US (occurrence: None)
  Receive Date: 20130906
  Receipt Date: 20130906
  Transmission Date: 20140515
  Serious: Yes (Hospitalization, Other)
  Sender: FDA-Public Use
  Company Number: 163-POMAL-13080926

PATIENT
  Age: 71 Year
  Sex: Male
  Weight: 86.18 kg

DRUGS (14)
  1. POMALYST [Suspect]
     Indication: PLASMA CELL MYELOMA
     Dosage: 4 MG, 21 IN 21 D, PO
     Route: 048
     Dates: start: 20130517
  2. ADVAIR DISKUS (SERETIDE MITE) (UNKNOWN) [Concomitant]
  3. ALBUTEROL (SALBUTAMOL) (INHALANT) [Concomitant]
  4. ANDROGEL (TESTOSTERONE) (UNKNOWN) [Concomitant]
  5. CLARITIN (LORATADINE) (UNKNOWN) [Concomitant]
  6. DEXAMETHASONE (DEXAMEHTASONE) (UNKNOWN) [Concomitant]
  7. DILTIAZEM (DILTIAZEM) (UNKNOWN) (DILTIAZEM) [Concomitant]
  8. FLAX SEED OIL (LINUM USITATISSIMUM SEED OIL) (UNKNOWN) [Concomitant]
  9. MEN^S MULTIVITAMINS (MEN^S MULTI) (UNKNOWN) [Concomitant]
  10. OMEPRAZOLE (OMEPRAZOLE) (UNKNOWN) [Concomitant]
  11. OXYCODONE (OXYCODONE) (UNKNOWN) (OXYCODONE) [Concomitant]
  12. OXYCONTIN (OXYCODONE HYDROCHLORIDE) (UNKNOWN) [Concomitant]
  13. XARELTO (RIVAROXABAN) (UNKNOWN) [Concomitant]
  14. ZOMETA (ZOLEDRONIC ACID) (UNKNOWN) [Concomitant]

REACTIONS (3)
  - Bronchitis [None]
  - Fluid retention [None]
  - Constipation [None]
